FAERS Safety Report 13775243 (Version 1)
Quarter: 2017Q3

REPORT INFORMATION
  Report Type: Spontaneous
  Country: US (occurrence: US)
  Receive Date: 20170720
  Receipt Date: 20170720
  Transmission Date: 20171127
  Serious: No
  Sender: FDA-Public Use
  Company Number: None

PATIENT
  Sex: Female

DRUGS (1)
  1. SPRYCEL [Suspect]
     Active Substance: DASATINIB
     Indication: PLASMA CELL MYELOMA
     Route: 048
     Dates: start: 20170412

REACTIONS (2)
  - Hypoaesthesia [None]
  - Paraesthesia [None]
